FAERS Safety Report 15253526 (Version 1)
Quarter: 2018Q3

REPORT INFORMATION
  Report Type: Spontaneous
  Country: EC (occurrence: EC)
  Receive Date: 20180808
  Receipt Date: 20180808
  Transmission Date: 20181010
  Serious: Yes (Hospitalization, Other)
  Sender: FDA-Public Use
  Company Number: EC-ROCHE-2136860

PATIENT
  Age: 53 Year
  Sex: Female

DRUGS (1)
  1. ATEZOLIZUMAB. [Suspect]
     Active Substance: ATEZOLIZUMAB
     Indication: NON-SMALL CELL LUNG CANCER
     Route: 042

REACTIONS (5)
  - Fatigue [Unknown]
  - Dysphagia [Unknown]
  - Nosocomial infection [Recovering/Resolving]
  - Thrombocytopenia [Unknown]
  - Pneumonia bacterial [Recovering/Resolving]
